FAERS Safety Report 17068704 (Version 2)
Quarter: 2020Q1

REPORT INFORMATION
  Report Type: Report from Study
  Country: GB (occurrence: GB)
  Receive Date: 20191123
  Receipt Date: 20200114
  Transmission Date: 20200409
  Serious: Yes (Other)
  Sender: FDA-Public Use
  Company Number: PHFR2016GB002355

PATIENT
  Age: 49 Year
  Sex: Female

DRUGS (1)
  1. GILENYA [Suspect]
     Active Substance: FINGOLIMOD HYDROCHLORIDE
     Indication: MULTIPLE SCLEROSIS
     Dosage: 0.5 MG, QD
     Route: 048
     Dates: start: 20140917, end: 201610

REACTIONS (16)
  - Ligament sprain [Unknown]
  - Eye pain [Unknown]
  - Vision blurred [Unknown]
  - Cognitive disorder [Unknown]
  - Lymphocyte count decreased [Recovered/Resolved]
  - Gamma-glutamyltransferase increased [Recovered/Resolved]
  - Urinary tract infection [Unknown]
  - Pruritus [Recovered/Resolved]
  - Constipation [Unknown]
  - Fall [Unknown]
  - Alanine aminotransferase increased [Recovered/Resolved]
  - Musculoskeletal pain [Unknown]
  - Flushing [Unknown]
  - Liver abscess [Unknown]
  - Cellulitis [Recovered/Resolved]
  - Hypergammaglobulinaemia benign monoclonal [Not Recovered/Not Resolved]

NARRATIVE: CASE EVENT DATE: 20150918
